FAERS Safety Report 23122645 (Version 2)
Quarter: 2024Q4

REPORT INFORMATION
  Report Type: Spontaneous
  Country: US (occurrence: US)
  Receive Date: 20231030
  Receipt Date: 20241115
  Transmission Date: 20250115
  Serious: No
  Sender: APOTEX
  Company Number: US-APOTEX-2023AP014929

PATIENT
  Sex: Female

DRUGS (1)
  1. SIROLIMUS [Suspect]
     Active Substance: SIROLIMUS
     Indication: Product used for unknown indication
     Dosage: 1 MILLILITER, QD (EVERYDAY AT 6 PM)
     Route: 065
     Dates: start: 202309

REACTIONS (2)
  - Liquid product physical issue [Unknown]
  - Diarrhoea [Unknown]

NARRATIVE: CASE EVENT DATE: 20230901
